FAERS Safety Report 16361260 (Version 2)
Quarter: 2019Q2

REPORT INFORMATION
  Report Type: Report from Study
  Country: GT (occurrence: GT)
  Receive Date: 20190528
  Receipt Date: 20190613
  Transmission Date: 20190711
  Serious: Yes (Hospitalization, Other)
  Sender: FDA-Public Use
  Company Number: PHHY2019GT121442

PATIENT
  Age: 79 Year
  Sex: Male

DRUGS (1)
  1. VYMADA [Suspect]
     Active Substance: SACUBITRIL\VALSARTAN
     Indication: BLOOD PRESSURE ABNORMAL
     Dosage: 100 MG, QD
     Route: 065
     Dates: start: 201902, end: 201904

REACTIONS (12)
  - Swelling [Unknown]
  - Peripheral swelling [Unknown]
  - Fluid retention [Unknown]
  - Product use in unapproved indication [Unknown]
  - Inappropriate schedule of product administration [Unknown]
  - Cardiac disorder [Unknown]
  - Malaise [Unknown]
  - Fatigue [Unknown]
  - Renal failure [Unknown]
  - Pulmonary oedema [Unknown]
  - Shock [Unknown]
  - Concomitant disease aggravated [Unknown]
